FAERS Safety Report 4830098-8 (Version None)
Quarter: 2005Q4

REPORT INFORMATION
  Report Type: 
  Country: None (occurrence: None)
  Receive Date: 20051114
  Receipt Date: 20051102
  Transmission Date: 20060501
  Serious: Yes (Other)
  Sender: FDA-Public Use
  Company Number: DE-2005-023228

PATIENT
  Sex: Male

DRUGS (1)
  1. BETASERON [Suspect]
     Dosage: SUBCUTANEOUS
     Route: 058

REACTIONS (1)
  - NECROSIS [None]
